FAERS Safety Report 12803848 (Version 1)
Quarter: 2016Q4

REPORT INFORMATION
  Report Type: Spontaneous
  Country: US (occurrence: US)
  Receive Date: 20161003
  Receipt Date: 20161003
  Transmission Date: 20170207
  Serious: Yes (Congenital Anomaly, Other)
  Sender: FDA-Public Use
  Company Number: US-APOTEX-2014AP003729

PATIENT
  Age: 0 Day
  Sex: Female

DRUGS (1)
  1. PAXIL [Suspect]
     Active Substance: PAROXETINE HYDROCHLORIDE
     Indication: DEPRESSION
     Dosage: UNK
     Route: 064

REACTIONS (8)
  - Patent ductus arteriosus [Unknown]
  - Ventricular septal defect [Unknown]
  - Lung disorder [Unknown]
  - Vascular malformation [Unknown]
  - Foetal exposure during pregnancy [Unknown]
  - Congenital pulmonary valve atresia [Unknown]
  - Atrial septal defect [Unknown]
  - Fallot^s tetralogy [Unknown]

NARRATIVE: CASE EVENT DATE: 20010916
